FAERS Safety Report 18137496 (Version 1)
Quarter: 2020Q3

REPORT INFORMATION
  Report Type: Spontaneous
  Country: SE (occurrence: SE)
  Receive Date: 20200811
  Receipt Date: 20200811
  Transmission Date: 20201103
  Serious: Yes (Death)
  Sender: FDA-Public Use
  Company Number: SE-SIGA TECHNOLOGIES, INC.-2088492

PATIENT
  Age: 57 Year
  Sex: Female
  Weight: 57 kg

DRUGS (13)
  1. DALTEPARIN INJECTION [Concomitant]
  2. HYDROCORTISONE. [Concomitant]
     Active Substance: HYDROCORTISONE
  3. OXYCODONE/NALOXONE [Concomitant]
     Active Substance: NALOXONE HYDROCHLORIDE\OXYCODONE HYDROCHLORIDE
  4. TPOXX [Suspect]
     Active Substance: TECOVIRIMAT
     Indication: COW POX
     Route: 048
     Dates: start: 20190822, end: 202002
  5. BRINCIDOFOVIR LIQUID [Concomitant]
     Route: 042
     Dates: start: 20190814, end: 202002
  6. MYCOPHENOLIC ACID. [Concomitant]
     Active Substance: MYCOPHENOLIC ACID
  7. VARIOUS ANTIFUNGALS [Concomitant]
  8. IMMUNOGLOBULIN [Concomitant]
  9. VACCINIA IMMUNE GLOBULIN INTRAVENOUS [Concomitant]
     Route: 042
     Dates: start: 20190830, end: 20190909
  10. PREDNISOLONE. [Concomitant]
     Active Substance: PREDNISOLONE
  11. ANTI?DIARRHEAL LOPERAMIDE HCL [Concomitant]
     Active Substance: LOPERAMIDE HYDROCHLORIDE
  12. CREON [Concomitant]
     Active Substance: PANCRELIPASE AMYLASE\PANCRELIPASE LIPASE\PANCRELIPASE PROTEASE
  13. VARIOUS ANTIBIOTICS [Concomitant]

REACTIONS (1)
  - Renal failure [Fatal]

NARRATIVE: CASE EVENT DATE: 20200303
